FAERS Safety Report 13093623 (Version 1)
Quarter: 2017Q1

REPORT INFORMATION
  Report Type: Report from Study
  Country: US (occurrence: US)
  Receive Date: 20170106
  Receipt Date: 20170106
  Transmission Date: 20170428
  Serious: Yes (Other)
  Sender: FDA-Public Use
  Company Number: US-009507513-1701USA000564

PATIENT
  Sex: Female

DRUGS (1)
  1. SITAGLIPTIN PHOSPHATE (+) METFORMIN HYDROCHLORIDE [Suspect]
     Active Substance: METFORMIN HYDROCHLORIDE\SITAGLIPTIN PHOSPHATE
     Dosage: STRENGTH: 50/1000 MG; DOSE: 50/1000 MG DAILY
     Route: 048

REACTIONS (2)
  - Drug hypersensitivity [Unknown]
  - Product use issue [Unknown]
